FAERS Safety Report 24548481 (Version 1)
Quarter: 2024Q4

REPORT INFORMATION
  Report Type: Report from Study
  Country: US (occurrence: US)
  Receive Date: 20241025
  Receipt Date: 20241025
  Transmission Date: 20250115
  Serious: Yes (Hospitalization, Other)
  Sender: ABBVIE
  Company Number: US-ABBVIE-5973629

PATIENT
  Age: 64 Year
  Sex: Female

DRUGS (3)
  1. SKYRIZI [Suspect]
     Active Substance: RISANKIZUMAB-RZAA
     Indication: Psoriasis
     Dosage: WEEK 0, STRENGTH- 150MG/ML
     Route: 058
     Dates: start: 20240605, end: 20240605
  2. SKYRIZI [Suspect]
     Active Substance: RISANKIZUMAB-RZAA
     Dosage: WEEK 4, STRENGTH- 150MG/ML
     Route: 058
     Dates: start: 20240711, end: 20240711
  3. SKYRIZI [Suspect]
     Active Substance: RISANKIZUMAB-RZAA
     Dosage: STRENGTH- 150MG/ML
     Route: 058
     Dates: start: 20240929

REACTIONS (5)
  - Myocardial infarction [Unknown]
  - Pain [Unknown]
  - Diabetes mellitus inadequate control [Unknown]
  - Acute myocardial infarction [Unknown]
  - Skin exfoliation [Not Recovered/Not Resolved]

NARRATIVE: CASE EVENT DATE: 20240801
